FAERS Safety Report 17338890 (Version 1)
Quarter: 2020Q1

REPORT INFORMATION
  Report Type: Report from Study
  Country: US (occurrence: US)
  Receive Date: 20200129
  Receipt Date: 20200129
  Transmission Date: 20200409
  Serious: No
  Sender: FDA-Public Use
  Company Number: NVSC2020US022183

PATIENT
  Sex: Female

DRUGS (1)
  1. ENTRESTO [Suspect]
     Active Substance: SACUBITRIL\VALSARTAN
     Indication: CARDIAC FAILURE
     Dosage: 1 DF, BID (97MG SACUBITRIL /103MGVALSARTAN)
     Route: 065
     Dates: start: 201806

REACTIONS (3)
  - Emotional distress [Unknown]
  - Insomnia [Unknown]
  - Anger [Unknown]
